FAERS Safety Report 13363532 (Version 1)
Quarter: 2017Q1

REPORT INFORMATION
  Report Type: Spontaneous
  Country: US (occurrence: US)
  Receive Date: 20170323
  Receipt Date: 20170323
  Transmission Date: 20170429
  Serious: No
  Sender: FDA-Public Use
  Company Number: US-BIOGEN-2017BI00373751

PATIENT
  Age: 60 Year
  Sex: Female

DRUGS (3)
  1. TYSABRI [Suspect]
     Active Substance: NATALIZUMAB
     Route: 041
     Dates: start: 20161011
  2. TYSABRI [Suspect]
     Active Substance: NATALIZUMAB
     Route: 041
     Dates: start: 20070212, end: 20160209
  3. TYSABRI [Suspect]
     Active Substance: NATALIZUMAB
     Indication: MULTIPLE SCLEROSIS
     Route: 041
     Dates: start: 20070212, end: 20081210

REACTIONS (1)
  - Impaired self-care [Not Recovered/Not Resolved]

NARRATIVE: CASE EVENT DATE: 20170314
